FAERS Safety Report 7024045-0 (Version None)
Quarter: 2010Q4

REPORT INFORMATION
  Report Type: 
  Country: None (occurrence: None)
  Receive Date: 20101001
  Receipt Date: 20100922
  Transmission Date: 20110411
  Serious: Yes (Hospitalization, Other)
  Sender: FDA-Public Use
  Company Number: JP-ASTRAZENECA-2010SE45905

PATIENT

DRUGS (4)
  1. SEROQUEL [Suspect]
     Route: 048
     Dates: start: 20100921
  2. ABILIFY [Suspect]
     Route: 048
     Dates: start: 20100921
  3. BLONANSERIN [Suspect]
     Route: 048
     Dates: start: 20100921
  4. HYPNOTICS AND SEDATIVES [Suspect]
     Route: 048
     Dates: start: 20100921

REACTIONS (2)
  - MULTIPLE DRUG OVERDOSE INTENTIONAL [None]
  - SOMNOLENCE [None]
